FAERS Safety Report 14169885 (Version 7)
Quarter: 2019Q3

REPORT INFORMATION
  Report Type: Spontaneous
  Country: US (occurrence: US)
  Receive Date: 20171108
  Receipt Date: 20190926
  Transmission Date: 20191004
  Serious: Yes (Other)
  Sender: FDA-Public Use
  Company Number: US-PFIZER INC-2016497395

PATIENT
  Age: 47 Year
  Sex: Female
  Weight: 72 kg

DRUGS (22)
  1. LYRICA [Suspect]
     Active Substance: PREGABALIN
     Indication: PAIN
     Dosage: UNK
     Dates: end: 2014
  2. LYRICA [Suspect]
     Active Substance: PREGABALIN
     Dosage: 100 MG, 2X/DAY
     Dates: end: 201710
  3. LISINOPRIL. [Concomitant]
     Active Substance: LISINOPRIL
     Dosage: 5 MG, 1X/DAY
     Route: 048
  4. LISINOPRIL. [Concomitant]
     Active Substance: LISINOPRIL
     Dosage: 15 MG, 1X/DAY
  5. TYLENOL WITH CODEIN #4 [Concomitant]
     Dosage: 1 DF, AS NEEDED [CODEINE PHOSPHATE: 60MG]/[PARACETAMOL: 300MG] (1 TABLET Q6H PRN )
     Route: 048
     Dates: start: 20161025
  6. MIRTAZAPINE. [Concomitant]
     Active Substance: MIRTAZAPINE
     Dosage: 30 MG, 1X/DAY
  7. LYRICA [Suspect]
     Active Substance: PREGABALIN
     Indication: INTERVERTEBRAL DISC DEGENERATION
     Dosage: 100 MG, 2X/DAY (1 CAPSULE BID)
     Route: 048
     Dates: end: 20160531
  8. LYRICA [Suspect]
     Active Substance: PREGABALIN
     Dosage: 75 MG,3X/DAY; (1 CAPSULE TID PRN)
     Route: 048
     Dates: end: 20170112
  9. AUGMENTIN [Concomitant]
     Active Substance: AMOXICILLIN\CLAVULANATE POTASSIUM
     Dosage: 1 DF, 2X/DAY [AMOXICILLIN SODIUM: 875 MG/ CLAVULANATE POTASSIUM: 125MG]
     Route: 048
     Dates: end: 20160531
  10. REMERON [Concomitant]
     Active Substance: MIRTAZAPINE
     Dosage: 15 MG, 1X/DAY(ONCE DAILY HS)
     Route: 048
  11. NABUMETONE. [Concomitant]
     Active Substance: NABUMETONE
     Dosage: 500 MG, AS NEEDED (QID PRN)
     Route: 048
     Dates: end: 20160808
  12. LYRICA [Suspect]
     Active Substance: PREGABALIN
     Indication: NEUROPATHY PERIPHERAL
     Dosage: UNK
     Dates: start: 2009
  13. PSEUDOEPHEDRINE HCL [Concomitant]
     Active Substance: PSEUDOEPHEDRINE HYDROCHLORIDE
     Dosage: 30 MG, 2X/DAY
     Route: 048
  14. LORATADINE. [Concomitant]
     Active Substance: LORATADINE
     Dosage: 16 MG, 1X/DAY
  15. PRENATAL PLUS [Concomitant]
     Active Substance: .ALPHA.-TOCOPHEROL ACETATE, DL-\.BETA.-CAROTENE\ASCORBIC ACID\CALCIUM CARBONATE\CHOLECALCIFEROL\CUPRIC OXIDE\CYANOCOBALAMIN\FERROUS FUMARATE\FOLIC ACID\NIACINAMIDE\PYRIDOXINE HYDROCHLORIDE\RIBOFLAVIN\THIAMINE MONONITRATE\VITAMIN A ACETATE\ZINC OXIDE
     Dosage: UNK UNK, 1X/DAY; (27-1 MG ORAL TABLET)
     Route: 048
  16. LYRICA [Suspect]
     Active Substance: PREGABALIN
     Indication: NERVE INJURY
     Dosage: 150 MG, 3X/DAY
     Route: 048
  17. BENADRYL [Concomitant]
     Active Substance: DIPHENHYDRAMINE HYDROCHLORIDE
     Dosage: 30 MG, UNK
  18. LORATADINE. [Concomitant]
     Active Substance: LORATADINE
     Dosage: 10 MG, 1X/DAY
     Route: 048
  19. PROTONIX [Concomitant]
     Active Substance: PANTOPRAZOLE SODIUM
     Dosage: 40 MG, 1X/DAY
     Route: 048
  20. PROZAC [Concomitant]
     Active Substance: FLUOXETINE HYDROCHLORIDE
     Dosage: 20 MG, 2X/DAY
     Route: 048
     Dates: end: 20160808
  21. BUTRANS [Concomitant]
     Active Substance: BUPRENORPHINE
     Dosage: 7.5MCG/HR PATCH
  22. PANTOPRAZOLE [Concomitant]
     Active Substance: PANTOPRAZOLE
     Dosage: 40 MG, 1X/DAY

REACTIONS (6)
  - Overdose [Unknown]
  - Weight increased [Unknown]
  - Hallucination [Unknown]
  - Withdrawal syndrome [Unknown]
  - Pain [Not Recovered/Not Resolved]
  - Intestinal gangrene [Unknown]

NARRATIVE: CASE EVENT DATE: 2014
